FAERS Safety Report 4314246-4 (Version None)
Quarter: 2004Q1

REPORT INFORMATION
  Report Type: 
  Country: None (occurrence: None)
  Receive Date: 20040309
  Receipt Date: 20040309
  Transmission Date: 20041129
  Serious: Yes (Hospitalization)
  Sender: FDA-Public Use
  Company Number: None

PATIENT
  Sex: Female

DRUGS (9)
  1. ZYVOX [Suspect]
     Indication: GLYCOPEPTIDE ANTIBIOTIC RESISTANT ENTEROCOCCAL INFECTION
     Dosage: 600 MG EVERY 12 H INTRAVENOUS
     Route: 042
     Dates: start: 20031116, end: 20031210
  2. ZYVOX [Suspect]
     Indication: SEPSIS
     Dosage: 600 MG EVERY 12 H INTRAVENOUS
     Route: 042
     Dates: start: 20031116, end: 20031210
  3. CEFEPIME [Concomitant]
  4. ARANESP [Concomitant]
  5. DIGOXIN [Concomitant]
  6. PREVACID [Concomitant]
  7. ZAROXOLYN [Concomitant]
  8. ALTACE [Concomitant]
  9. LACTULOSE [Concomitant]

REACTIONS (3)
  - INJECTION SITE HAEMORRHAGE [None]
  - LIVER DISORDER [None]
  - THROMBOCYTOPENIA [None]
